FAERS Safety Report 6324870-5 (Version None)
Quarter: 2009Q3

REPORT INFORMATION
  Report Type: 
  Country: None (occurrence: None)
  Receive Date: 20090820
  Receipt Date: 20090806
  Transmission Date: 20100115
  Serious: Yes (Other)
  Sender: FDA-Public Use
  Company Number: 001483

PATIENT
  Sex: Female

DRUGS (1)
  1. PROSTAVASIN /00501501/  (PROSTAVASIN) [Suspect]
     Indication: GANGRENE
     Dosage: INTRAVENOUS (NOT OTHERWISE SPECIFIED)
     Route: 042

REACTIONS (1)
  - MYOCARDIAL INFARCTION [None]
